FAERS Safety Report 10231508 (Version 1)
Quarter: 2014Q2

REPORT INFORMATION
  Report Type: Spontaneous
  Country: US (occurrence: US)
  Receive Date: 20140611
  Receipt Date: 20140611
  Transmission Date: 20141212
  Serious: No
  Sender: FDA-Public Use
  Company Number: US-MYLANLABS-2013S1011288

PATIENT
  Sex: Female

DRUGS (1)
  1. VALACYCLOVIR TABLETS [Suspect]
     Indication: HERPES VIRUS INFECTION
     Dosage: X5D
     Route: 048
     Dates: start: 20130514, end: 20130519

REACTIONS (2)
  - Drug effect decreased [Not Recovered/Not Resolved]
  - Herpes virus infection [Not Recovered/Not Resolved]
